FAERS Safety Report 9390044 (Version 1)
Quarter: 2013Q3

REPORT INFORMATION
  Report Type: Spontaneous
  Country: US (occurrence: US)
  Receive Date: 20130708
  Receipt Date: 20130708
  Transmission Date: 20140515
  Serious: Yes (Other)
  Sender: FDA-Public Use
  Company Number: US-AMGEN-USASP2013042867

PATIENT
  Age: 30 Year
  Sex: Female

DRUGS (1)
  1. ENBREL [Suspect]
     Indication: PSORIASIS
     Dosage: 40 MG, 2 TIMES/WK
     Route: 065
     Dates: start: 20130111, end: 20130604

REACTIONS (1)
  - Pharyngitis streptococcal [Recovered/Resolved]
